FAERS Safety Report 21556510 (Version 1)
Quarter: 2022Q4

REPORT INFORMATION
  Report Type: Spontaneous
  Country: US (occurrence: US)
  Receive Date: 20221104
  Receipt Date: 20221104
  Transmission Date: 20230112
  Serious: No
  Sender: FDA-Public Use
  Company Number: US-ANIPHARMA-2022-US-021212

PATIENT
  Age: 33 Year
  Sex: Female
  Weight: 107.05 kg

DRUGS (1)
  1. CORTICOTROPIN [Suspect]
     Active Substance: CORTICOTROPIN
     Indication: Product used for unknown indication
     Dosage: 80U 2X/WK
     Route: 030

REACTIONS (2)
  - Injection site erythema [Unknown]
  - Injection site pruritus [Unknown]
